APPROVED DRUG PRODUCT: PANHEPRIN
Active Ingredient: HEPARIN SODIUM
Strength: 10,000 UNITS/ML
Dosage Form/Route: INJECTABLE;INJECTION
Application: N005264 | Product #007
Applicant: HOSPIRA INC
Approved: Approved Prior to Jan 1, 1982 | RLD: No | RS: No | Type: DISCN